FAERS Safety Report 7730750-0 (Version None)
Quarter: 2011Q3

REPORT INFORMATION
  Report Type: 
  Country: None (occurrence: None)
  Receive Date: 20110906
  Receipt Date: 20110831
  Transmission Date: 20111222
  Serious: Yes (Other)
  Sender: FDA-Public Use
  Company Number: GB-VIIV HEALTHCARE LIMITED-B0743491A

PATIENT
  Age: 45 Year
  Sex: Female
  Weight: 77 kg

DRUGS (4)
  1. ATAZANAVIR [Suspect]
     Indication: ANTIRETROVIRAL THERAPY
     Dosage: 300MG PER DAY
     Route: 048
     Dates: start: 20090901
  2. ABACAVIR SULFATE AND LAMIVUDINE [Suspect]
     Indication: ANTIRETROVIRAL THERAPY
     Dosage: 1IUAX PER DAY
     Route: 048
     Dates: start: 20090901
  3. RITONAVIR [Suspect]
  4. TRUVADA [Suspect]

REACTIONS (1)
  - JAUNDICE [None]
